FAERS Safety Report 24327787 (Version 1)
Quarter: 2024Q3

REPORT INFORMATION
  Report Type: Spontaneous
  Country: US (occurrence: None)
  Receive Date: 20240917
  Receipt Date: 20240917
  Transmission Date: 20241017
  Serious: Yes (Hospitalization)
  Sender: Public
  Company Number: None

PATIENT
  Sex: Female
  Weight: 39.7 kg

DRUGS (2)
  1. LOMUSTINE [Suspect]
     Active Substance: LOMUSTINE
     Dates: end: 20240729
  2. TEMOZOLOMIDE [Suspect]
     Active Substance: TEMOZOLOMIDE
     Dates: end: 20240731

REACTIONS (22)
  - Shock [None]
  - Acute respiratory failure [None]
  - Hypoxia [None]
  - Lactic acidosis [None]
  - Hypernatraemia [None]
  - Encephalopathy [None]
  - Failure to thrive [None]
  - Malnutrition [None]
  - Thrombocytopenia [None]
  - Mental status changes [None]
  - Dehydration [None]
  - Hypotension [None]
  - Cachexia [None]
  - Leukocytosis [None]
  - Anaemia [None]
  - International normalised ratio increased [None]
  - Hyperglycaemia [None]
  - Hypercalcaemia [None]
  - Acute kidney injury [None]
  - Sepsis [None]
  - Atrial fibrillation [None]
  - Hospice care [None]

NARRATIVE: CASE EVENT DATE: 20240820
